FAERS Safety Report 7207299-7 (Version None)
Quarter: 2011Q1

REPORT INFORMATION
  Report Type: 
  Country: None (occurrence: None)
  Receive Date: 20110103
  Receipt Date: 20101220
  Transmission Date: 20110831
  Serious: Yes (Hospitalization)
  Sender: FDA-Public Use
  Company Number: PHHY2010FR87123

PATIENT
  Sex: Female

DRUGS (5)
  1. ESOMEPRAZOLE [Suspect]
     Dosage: UNK
     Dates: end: 20100920
  2. CORDARONE [Suspect]
     Dosage: UNK
     Dates: start: 20100906, end: 20100908
  3. TAREG [Suspect]
     Dosage: UNK
     Dates: end: 20100920
  4. RAMIPRIL [Suspect]
     Dosage: UNK
     Dates: end: 20100920
  5. ZYLORIC [Suspect]
     Dosage: UNK
     Dates: end: 20100920

REACTIONS (15)
  - PLANTAR ERYTHEMA [None]
  - TOXIC SKIN ERUPTION [None]
  - SKIN EXFOLIATION [None]
  - SKIN NECROSIS [None]
  - ATRIAL FIBRILLATION [None]
  - DEHYDRATION [None]
  - CARDIAC FAILURE [None]
  - MYOCARDIAL INFARCTION [None]
  - ECZEMA [None]
  - RENAL FAILURE ACUTE [None]
  - DIARRHOEA [None]
  - HYPOTENSION [None]
  - LEFT VENTRICULAR FAILURE [None]
  - RASH GENERALISED [None]
  - MALNUTRITION [None]
